FAERS Safety Report 9146578 (Version 2)
Quarter: 2013Q1

REPORT INFORMATION
  Report Type: Spontaneous
  Country: AT (occurrence: AT)
  Receive Date: 20130307
  Receipt Date: 20130321
  Transmission Date: 20140127
  Serious: Yes (Disabling, Other)
  Sender: FDA-Public Use
  Company Number: AT-ASTRAZENECA-2013SE13060

PATIENT
  Sex: Female
  Weight: 65 kg

DRUGS (4)
  1. VIMOVO [Suspect]
     Indication: SPINAL OSTEOARTHRITIS
     Dosage: 0-0-1, AT NIGHT
     Route: 048
     Dates: start: 20121127, end: 20130107
  2. VIMOVO [Suspect]
     Indication: SPINAL OSTEOARTHRITIS
     Dosage: 1-0-1, TWO TIMES PER DAY
     Route: 048
     Dates: start: 20130108, end: 201301
  3. CONCOR [Concomitant]
     Indication: HYPERTENSION
     Dosage: 2.5; IN THE MORNING
     Dates: start: 2006
  4. CO-ENAC [Concomitant]
     Indication: HYPERTENSION
     Dosage: IN THE MORNING
     Dates: start: 2006

REACTIONS (3)
  - Atrial fibrillation [Unknown]
  - Agitation [Unknown]
  - Dyspnoea [Unknown]
